FAERS Safety Report 10223433 (Version 1)
Quarter: 2014Q2

REPORT INFORMATION
  Report Type: Spontaneous
  Country: US (occurrence: None)
  Receive Date: 20140606
  Receipt Date: 20140606
  Transmission Date: 20141212
  Serious: Yes (Hospitalization)
  Sender: FDA-Public Use
  Company Number: None

PATIENT
  Age: 71 Year
  Sex: Male
  Weight: 69.6 kg

DRUGS (9)
  1. BUSULFAN [Suspect]
     Indication: BONE MARROW CONDITIONING REGIMEN
     Dosage: 1.6 MG/KG (155.2 MG)
     Route: 042
  2. ACYCLOVIR [Concomitant]
  3. ANTITHYMOCTYE GLOBULIN [Concomitant]
  4. DEXAMETHASONE [Concomitant]
  5. FLUDARABINE [Concomitant]
  6. DAILY MULTIVITMAIN [Concomitant]
  7. ONDANSETRON [Concomitant]
  8. RANITIDINE [Concomitant]
  9. TACROLIMUS [Concomitant]

REACTIONS (7)
  - Tenderness [None]
  - Erythema [None]
  - Blister [None]
  - Wound [None]
  - Pain [None]
  - Abasia [None]
  - Skin exfoliation [None]
